FAERS Safety Report 5019872-5 (Version None)
Quarter: 2006Q2

REPORT INFORMATION
  Report Type: 
  Country: None (occurrence: None)
  Receive Date: 20060607
  Receipt Date: 20060525
  Transmission Date: 20061013
  Serious: Yes (Death, Hospitalization, Disabling, Other)
  Sender: FDA-Public Use
  Company Number: US-AMGEN-US181039

PATIENT
  Sex: Female

DRUGS (2)
  1. PROCRIT [Suspect]
     Indication: RENAL FAILURE CHRONIC
     Dates: end: 20060401
  2. FENTANYL [Concomitant]
     Dates: start: 20060101

REACTIONS (5)
  - APLASIA PURE RED CELL [None]
  - DEATH [None]
  - NERVE BLOCK [None]
  - PARAPLEGIA [None]
  - SURGERY [None]
